FAERS Safety Report 9284549 (Version 1)
Quarter: 2013Q2

REPORT INFORMATION
  Report Type: Spontaneous
  Country: FR (occurrence: FR)
  Receive Date: 20130511
  Receipt Date: 20130511
  Transmission Date: 20140414
  Serious: Yes (Life-Threatening, Other)
  Sender: FDA-Public Use
  Company Number: FR-TEVA-401972ISR

PATIENT
  Age: 13 Year
  Sex: Female

DRUGS (6)
  1. VINCRISTINE TEVA 0.1 % (1 MG/1 ML) [Suspect]
     Indication: B-CELL TYPE ACUTE LEUKAEMIA
     Dosage: ACCORDING TO CYCLE
     Route: 041
     Dates: start: 20120927
  2. CYTARABINE EBEWE [Suspect]
     Indication: B-CELL TYPE ACUTE LEUKAEMIA
     Dosage: 4000 MG/M2 DAILY;
     Route: 041
     Dates: start: 20120927, end: 20120928
  3. ETOPOSIDE MYLAN 20 MG/ML [Suspect]
     Indication: B-CELL TYPE ACUTE LEUKAEMIA
     Dosage: 150 MG/M2 DAILY;
     Route: 041
     Dates: start: 20120927, end: 20121001
  4. DEXAMETHASONE MYLAN [Suspect]
     Indication: B-CELL TYPE ACUTE LEUKAEMIA
     Dosage: 20 MG/M2 DAILY;
     Route: 041
     Dates: start: 20120927, end: 20121001
  5. ARACYTINE [Suspect]
     Indication: B-CELL TYPE ACUTE LEUKAEMIA
     Dosage: 40 MILLIGRAM DAILY; ACCORDING TO CYCLE
     Route: 037
     Dates: start: 20121001, end: 20121001
  6. METHOTREXATE MYLAN [Suspect]
     Indication: B-CELL TYPE ACUTE LEUKAEMIA
     Dosage: 15 MILLIGRAM DAILY; ONCE INTAKE
     Route: 037
     Dates: start: 20121001, end: 20121001

REACTIONS (6)
  - Septic shock [Recovered/Resolved]
  - Febrile bone marrow aplasia [Recovered/Resolved]
  - Respiratory distress [Recovered/Resolved]
  - Renal impairment [Recovered/Resolved]
  - Pneumonia klebsiella [Unknown]
  - Circulatory collapse [Recovered/Resolved]
